FAERS Safety Report 15807057 (Version 2)
Quarter: 2019Q1

REPORT INFORMATION
  Report Type: Spontaneous
  Country: JP (occurrence: JP)
  Receive Date: 20190110
  Receipt Date: 20190124
  Transmission Date: 20190417
  Serious: Yes (Hospitalization)
  Sender: FDA-Public Use
  Company Number: JP-BAYER-2019-005704

PATIENT
  Age: 85 Year
  Sex: Male

DRUGS (6)
  1. DENOTAS [Concomitant]
     Active Substance: CALCIUM CARBONATE\CHOLECALCIFEROL\MAGNESIUM CARBONATE
  2. CALCITRIOL. [Concomitant]
     Active Substance: CALCITRIOL
  3. GONAX [Concomitant]
     Active Substance: DEGARELIX
  4. RANMARK [Concomitant]
     Active Substance: DENOSUMAB
  5. XOFIGO [Suspect]
     Active Substance: RADIUM RA-223 DICHLORIDE
     Indication: HORMONE-REFRACTORY PROSTATE CANCER
     Dosage: 55 KBQ/KG, Q4WK
     Route: 042
     Dates: start: 20181213
  6. BICALUTAMIDE. [Concomitant]
     Active Substance: BICALUTAMIDE

REACTIONS (4)
  - Tinnitus [Recovering/Resolving]
  - Headache [Recovering/Resolving]
  - Physical deconditioning [Not Recovered/Not Resolved]
  - Ileus [Unknown]

NARRATIVE: CASE EVENT DATE: 201812
